FAERS Safety Report 6036192-0 (Version None)
Quarter: 2009Q1

REPORT INFORMATION
  Report Type: 
  Country: None (occurrence: None)
  Receive Date: 20090113
  Receipt Date: 20090108
  Transmission Date: 20090719
  Serious: Yes (Hospitalization)
  Sender: FDA-Public Use
  Company Number: PT-ROXANE LABORATORIES, INC.-2009-RO-00032RO

PATIENT
  Age: 18 Year
  Sex: Female

DRUGS (3)
  1. CLARITHROMYCIN [Suspect]
  2. ANTI-PSYCHOTIC [Concomitant]
  3. MOOD STABALIZER [Concomitant]

REACTIONS (1)
  - MANIA [None]
